FAERS Safety Report 14291443 (Version 2)
Quarter: 2018Q1

REPORT INFORMATION
  Report Type: Spontaneous
  Country: US (occurrence: US)
  Receive Date: 20171215
  Receipt Date: 20180131
  Transmission Date: 20180509
  Serious: Yes (Other)
  Sender: FDA-Public Use
  Company Number: US-INCYTE CORPORATION-2017IN010545

PATIENT

DRUGS (3)
  1. JAKAFI [Suspect]
     Active Substance: RUXOLITINIB
     Dosage: 10 MG, BID
     Route: 048
     Dates: start: 20171023
  2. JAKAFI [Suspect]
     Active Substance: RUXOLITINIB
     Indication: MYELOFIBROSIS
     Dosage: 5 MG, BID
     Route: 048
     Dates: start: 20171002
  3. JAKAFI [Suspect]
     Active Substance: RUXOLITINIB
     Dosage: 10MG QAM, 5MG QPM
     Route: 048
     Dates: start: 20171212

REACTIONS (5)
  - Platelet count decreased [Unknown]
  - Nausea [Unknown]
  - Cachexia [Unknown]
  - Incorrect dose administered [Unknown]
  - Headache [Recovering/Resolving]

NARRATIVE: CASE EVENT DATE: 20171212
